FAERS Safety Report 9133711 (Version 2)
Quarter: 2013Q1

REPORT INFORMATION
  Report Type: Spontaneous
  Country: DE (occurrence: DE)
  Receive Date: 20130303
  Receipt Date: 20130315
  Transmission Date: 20140127
  Serious: Yes (Hospitalization)
  Sender: FDA-Public Use
  Company Number: DE-TEVA-387287GER

PATIENT
  Age: 16 Year
  Sex: Male

DRUGS (1)
  1. MCP [Suspect]
     Indication: NAUSEA
     Dosage: ACCORDING TO THE PHYSICANS ADVICE
     Route: 048

REACTIONS (18)
  - Dyskinesia [Recovered/Resolved]
  - Torticollis [Recovered/Resolved]
  - Trismus [Recovered/Resolved]
  - Muscle spasms [Recovered/Resolved]
  - Posture abnormal [Recovered/Resolved]
  - Circulatory collapse [Recovered/Resolved]
  - Gaze palsy [Recovered/Resolved]
  - Dyspnoea [Recovered/Resolved]
  - Visual impairment [Recovered/Resolved]
  - Dizziness [Recovered/Resolved]
  - Depression [Recovered/Resolved]
  - Fear [Recovered/Resolved]
  - Crying [Recovered/Resolved]
  - Restlessness [Recovered/Resolved]
  - Chest pain [Recovered/Resolved]
  - Back pain [Recovered/Resolved]
  - Chills [Recovered/Resolved]
  - Restless legs syndrome [Recovered/Resolved]
